FAERS Safety Report 8224503-7 (Version None)
Quarter: 2012Q1

REPORT INFORMATION
  Report Type: 
  Country: None (occurrence: None)
  Receive Date: 20120321
  Receipt Date: 20120313
  Transmission Date: 20120608
  Serious: Yes (Other)
  Sender: FDA-Public Use
  Company Number: BR-ABBOTT-12P-020-0915128-00

PATIENT
  Sex: Female
  Weight: 83 kg

DRUGS (4)
  1. HUMIRA [Suspect]
     Indication: RHEUMATOID ARTHRITIS
     Route: 058
     Dates: start: 20100818, end: 20120207
  2. PREDNISONE [Concomitant]
     Indication: ARTHROPATHY
     Dosage: 1 TABLET PER DAY
     Route: 048
     Dates: start: 20090101
  3. METHOTREXATE [Concomitant]
     Indication: PROPHYLAXIS
     Dosage: 1 CAPSULE PER WEEK
     Dates: start: 20090101
  4. METHOTREXATE [Concomitant]
     Indication: DEFORMITY

REACTIONS (3)
  - UMBILICAL HERNIA [None]
  - INCISION SITE PAIN [None]
  - TUBERCULIN TEST POSITIVE [None]
